FAERS Safety Report 20818616 (Version 1)
Quarter: 2022Q2

REPORT INFORMATION
  Report Type: Spontaneous
  Country: GB (occurrence: GB)
  Receive Date: 20220512
  Receipt Date: 20220512
  Transmission Date: 20220721
  Serious: Yes (Life-Threatening, Other)
  Sender: FDA-Public Use
  Company Number: GB-MHRA-MED-202205101345400740-IIFPH

PATIENT
  Sex: Female

DRUGS (2)
  1. BUPROPION [Suspect]
     Active Substance: BUPROPION
     Indication: Smoking cessation therapy
     Dosage: 50 MG, QD (50MG DAILY FOR 6 DAYS THEN 100MG DAILY)
     Route: 065
  2. BUPROPION [Suspect]
     Active Substance: BUPROPION
     Dosage: 100 MG, QD (50MG DAILY FOR 6 DAYS THEN 100MG DAILY)
     Route: 065

REACTIONS (1)
  - Depression [Recovering/Resolving]
